FAERS Safety Report 6216321-6 (Version None)
Quarter: 2009Q2

REPORT INFORMATION
  Report Type: 
  Country: None (occurrence: None)
  Receive Date: 20090605
  Receipt Date: 20090529
  Transmission Date: 20091009
  Serious: No
  Sender: FDA-Public Use
  Company Number: GR-ASTRAZENECA-2009SE02121

PATIENT
  Sex: Male

DRUGS (2)
  1. SEROQUEL [Suspect]
     Route: 048
  2. EFFEXOR [Concomitant]

REACTIONS (1)
  - LEUKOPENIA [None]
